FAERS Safety Report 9892809 (Version 1)
Quarter: 2014Q1

REPORT INFORMATION
  Report Type: Report from Study
  Country: GB (occurrence: GB)
  Receive Date: 20140213
  Receipt Date: 20140213
  Transmission Date: 20141002
  Serious: Yes (Hospitalization, Other)
  Sender: FDA-Public Use
  Company Number: GB-ROCHE-1343309

PATIENT
  Sex: 0

DRUGS (5)
  1. MYCOPHENOLATE MOFETIL [Suspect]
     Indication: PROPHYLAXIS AGAINST TRANSPLANT REJECTION
     Dosage: THE MEAN+/- SD (MEDIAN) MMF DOSE IN THE BASILIXIMAB GROUP AT 1 YEAR WAS 1.2+/-0.3 (1.5) G/24 HR.
     Route: 048
  2. BASILIXIMAB [Suspect]
     Indication: PROPHYLAXIS AGAINST TRANSPLANT REJECTION
     Dosage: ON DAYS 0 AND 4
     Route: 042
  3. TACROLIMUS [Suspect]
     Indication: PROPHYLAXIS AGAINST TRANSPLANT REJECTION
     Dosage: TO ACHIEVE TROUGH LEVELS OF 9 TO 14 NG/ML IN MONTHS 0 TO 3 AND OF 4 TO 9 NG/ML
     Route: 048
  4. METHYLPREDNISOLONE [Suspect]
     Indication: PROPHYLAXIS AGAINST TRANSPLANT REJECTION
     Dosage: INTRAOPERATIVELY
     Route: 042
  5. VALGANCICLOVIR HYDROCHLORIDE [Concomitant]
     Indication: ANTIVIRAL PROPHYLAXIS
     Route: 065

REACTIONS (11)
  - Urinary tract infection [Unknown]
  - Gastroenteritis [Unknown]
  - Sepsis [Unknown]
  - Lower respiratory tract infection [Unknown]
  - Cellulitis [Unknown]
  - Polyomavirus-associated nephropathy [Unknown]
  - Cytomegalovirus syndrome [Unknown]
  - Myocardial infarction [Unknown]
  - Post transplant lymphoproliferative disorder [Recovered/Resolved]
  - Renal cell carcinoma [Recovered/Resolved]
  - Leukopenia [Unknown]
